FAERS Safety Report 5581329-0 (Version None)
Quarter: 2008Q1

REPORT INFORMATION
  Report Type: 
  Country: None (occurrence: None)
  Receive Date: 20080104
  Receipt Date: 20071227
  Transmission Date: 20080703
  Serious: Yes (Other)
  Sender: FDA-Public Use
  Company Number: PHBS2007BR21529

PATIENT
  Age: 75 Year
  Sex: Female
  Weight: 76 kg

DRUGS (10)
  1. TRILEPTAL [Suspect]
     Indication: EPILEPSY
     Dosage: 300 MG, BID
     Route: 048
     Dates: start: 20020101
  2. TRILEPTAL [Suspect]
     Dosage: 300 MG, QID
     Route: 048
  3. HIDANTAL [Concomitant]
     Indication: EPILEPSY
     Dosage: 100 MG, QID
     Route: 048
     Dates: start: 20020101
  4. SIMVASTATIN [Concomitant]
     Indication: PROPHYLAXIS
     Dosage: UNK, QD
     Route: 048
     Dates: start: 20020101
  5. AMLODIPINE [Concomitant]
     Indication: BLOOD PRESSURE INCREASED
     Dosage: 10 MG, BID
     Route: 048
     Dates: start: 20020101
  6. ANGIPRESS [Concomitant]
     Indication: BLOOD PRESSURE INCREASED
     Dosage: 50 MG, QD
     Route: 048
     Dates: start: 20020101
  7. CAPTOPRIL [Concomitant]
     Indication: BLOOD PRESSURE INCREASED
     Dosage: 25 MG, BID
     Route: 048
     Dates: start: 20020101
  8. ASPIRIN [Concomitant]
     Indication: CARDIOVASCULAR DISORDER
     Dosage: 100 MG, QD
     Route: 048
     Dates: start: 20020101
  9. RANITIDINE HCL [Concomitant]
     Indication: PROPHYLAXIS
     Dosage: UNK, QD
     Route: 048
     Dates: start: 20020101
  10. MONOCORDIL [Concomitant]
     Indication: BLOOD PRESSURE INCREASED
     Dosage: 20 MG, TID
     Route: 048
     Dates: start: 20060101

REACTIONS (3)
  - ACTIVITIES OF DAILY LIVING IMPAIRED [None]
  - DEPRESSION [None]
  - EPILEPSY [None]
